FAERS Safety Report 8114619-8 (Version None)
Quarter: 2012Q1

REPORT INFORMATION
  Report Type: 
  Country: None (occurrence: None)
  Receive Date: 20120206
  Receipt Date: 20120203
  Transmission Date: 20120608
  Serious: Yes (Other)
  Sender: FDA-Public Use
  Company Number: US-PFIZER INC-2012030875

PATIENT
  Sex: Female
  Weight: 50.34 kg

DRUGS (6)
  1. CENTRUM SILVER ULTRA WOMEN'S [Suspect]
     Indication: VITAMIN SUPPLEMENTATION
     Dosage: UNK, 1X/DAY
     Route: 048
     Dates: start: 20110101
  2. FOLIC ACID [Concomitant]
     Dosage: UNK, 1X/DAY
  3. SULFASALAZINE [Concomitant]
     Dosage: 1500 MG, 2X/DAY
  4. CALTRATE 600+D [Concomitant]
     Dosage: UNK
  5. CELEBREX [Suspect]
     Indication: ARTHRITIS
     Dosage: UNK
     Dates: start: 20010101, end: 20010101
  6. METHOTREXATE [Concomitant]
     Indication: ARTHRITIS
     Dosage: 12.5 MG, WEEKLY

REACTIONS (2)
  - CHOKING [None]
  - RETCHING [None]
